FAERS Safety Report 8268132-8 (Version None)
Quarter: 2012Q2

REPORT INFORMATION
  Report Type: 
  Country: None (occurrence: None)
  Receive Date: 20120409
  Receipt Date: 20120328
  Transmission Date: 20120825
  Serious: Yes (Other)
  Sender: FDA-Public Use
  Company Number: US-ROCHE-1029805

PATIENT
  Sex: Female
  Weight: 56.75 kg

DRUGS (2)
  1. ACCUTANE [Suspect]
     Dates: start: 19890101
  2. ACCUTANE [Suspect]
     Indication: ACNE
     Dosage: STARTED IN MID 1980'S

REACTIONS (3)
  - INJURY [None]
  - COLITIS MICROSCOPIC [None]
  - DEPRESSION [None]
